FAERS Safety Report 24693762 (Version 2)
Quarter: 2025Q3

REPORT INFORMATION
  Report Type: Spontaneous
  Country: US (occurrence: US)
  Receive Date: 20241204
  Receipt Date: 20250810
  Transmission Date: 20251021
  Serious: Yes (Other)
  Sender: ALEXION PHARMACEUTICALS
  Company Number: US-AstraZeneca-CH-00756427A

PATIENT
  Sex: Male

DRUGS (2)
  1. BREZTRI [Suspect]
     Active Substance: BUDESONIDE\FORMOTEROL\GLYCOPYRROLATE
     Indication: Emphysema
     Dosage: UNK UNK, BID
     Route: 065
  2. ALBUTEROL [Concomitant]
     Active Substance: ALBUTEROL
     Route: 065

REACTIONS (11)
  - Pulmonary embolism [Unknown]
  - Product dose omission issue [Unknown]
  - Off label use [Unknown]
  - Eosinophilic oesophagitis [Unknown]
  - Sinus disorder [Unknown]
  - Sleep apnoea syndrome [Unknown]
  - Nasal inflammation [Unknown]
  - Sinusitis [Unknown]
  - Dry mouth [Unknown]
  - Snoring [Unknown]
  - Nocturnal dyspnoea [Unknown]
